FAERS Safety Report 16959469 (Version 1)
Quarter: 2019Q4

REPORT INFORMATION
  Report Type: Spontaneous
  Country: CH (occurrence: CH)
  Receive Date: 20191025
  Receipt Date: 20191025
  Transmission Date: 20200122
  Serious: Yes (Hospitalization, Other)
  Sender: FDA-Public Use
  Company Number: CH-BRISTOL-MYERS SQUIBB COMPANY-BMS-2019-099933

PATIENT
  Age: 71 Year
  Sex: Female

DRUGS (23)
  1. SPRYCEL [Suspect]
     Active Substance: DASATINIB
     Indication: CHRONIC MYELOID LEUKAEMIA
     Dosage: 140 MILLIGRAM, QD
     Route: 048
     Dates: start: 20190809, end: 20190919
  2. CYTOSAR [Suspect]
     Active Substance: CYTARABINE
     Indication: CHRONIC MYELOID LEUKAEMIA
     Dosage: 330 MILLIGRAM, QWK
     Route: 041
     Dates: start: 20190806, end: 20190826
  3. ISAVUCONAZOLE [Suspect]
     Active Substance: ISAVUCONAZOLE
     Indication: PRODUCT USED FOR UNKNOWN INDICATION
     Dosage: 200 MILLIGRAM, QD
     Route: 065
     Dates: start: 20190830
  4. FLUCONAZOLE. [Suspect]
     Active Substance: FLUCONAZOLE
     Indication: PRODUCT USED FOR UNKNOWN INDICATION
     Dosage: UNK
     Route: 065
     Dates: start: 20190815, end: 20190822
  5. DAUNOBLASTIN [Suspect]
     Active Substance: DAUNORUBICIN HYDROCHLORIDE
     Indication: CHRONIC MYELOID LEUKAEMIA
     Dosage: 74.25 MILLIGRAM, D1-D3
     Route: 041
     Dates: start: 20190806, end: 20190826
  6. IMATINIB. [Suspect]
     Active Substance: IMATINIB MESYLATE
     Indication: CHRONIC MYELOID LEUKAEMIA
     Dosage: 400 MILLIGRAM, BID
     Route: 048
     Dates: start: 20190807, end: 20190808
  7. METHOTREXATE. [Suspect]
     Active Substance: METHOTREXATE
     Indication: CHRONIC MYELOID LEUKAEMIA
     Dosage: 12.5 MILLIGRAM
     Route: 037
     Dates: start: 20190807
  8. VALACICLOVIR [Suspect]
     Active Substance: VALACYCLOVIR HYDROCHLORIDE
     Indication: PRODUCT USED FOR UNKNOWN INDICATION
     Dosage: UNK
     Route: 065
  9. CIPROFLOXACIN. [Suspect]
     Active Substance: CIPROFLOXACIN
     Indication: PRODUCT USED FOR UNKNOWN INDICATION
     Dosage: UNK
     Route: 065
     Dates: start: 20190828, end: 20190904
  10. CALCIUM VITAMIN D3 TEVA [Suspect]
     Active Substance: CALCIUM\CHOLECALCIFEROL
     Indication: PRODUCT USED FOR UNKNOWN INDICATION
     Dosage: 1 DOSAGE FORM, QD
     Route: 065
  11. ENOXAPARIN [Suspect]
     Active Substance: ENOXAPARIN
     Indication: PRODUCT USED FOR UNKNOWN INDICATION
     Dosage: 40 MILLIGRAM, QD
     Route: 058
  12. METRONIDAZOLE. [Suspect]
     Active Substance: METRONIDAZOLE
     Indication: PRODUCT USED FOR UNKNOWN INDICATION
     Dosage: UNK
     Route: 065
     Dates: start: 20190828, end: 20190904
  13. CASPOFUNGIN [Suspect]
     Active Substance: CASPOFUNGIN
     Indication: SYSTEMIC MYCOSIS
     Dosage: 50 MILLIGRAM
     Route: 041
     Dates: start: 20190822, end: 20190825
  14. CYTOSAR [Suspect]
     Active Substance: CYTARABINE
     Indication: PRODUCT USED FOR UNKNOWN INDICATION
     Dosage: 30 MILLIGRAM
     Route: 037
     Dates: start: 20190708, end: 20190917
  15. METHOTREXATE. [Suspect]
     Active Substance: METHOTREXATE
     Indication: PRODUCT USED FOR UNKNOWN INDICATION
     Dosage: 12.5 MILLIGRAM
     Route: 037
     Dates: start: 20190917
  16. HYDROCORTISONE. [Suspect]
     Active Substance: HYDROCORTISONE
     Indication: ACUTE MYELOID LEUKAEMIA
     Dosage: 30 MILLIGRAM
     Route: 037
     Dates: start: 20190708, end: 20190917
  17. PIPERACILLIN AND TAZOBACTAM [Suspect]
     Active Substance: PIPERACILLIN SODIUM\TAZOBACTAM SODIUM
     Indication: PRODUCT USED FOR UNKNOWN INDICATION
     Dosage: UNK
     Route: 065
     Dates: start: 20190815, end: 20190828
  18. AMBISOME [Suspect]
     Active Substance: AMPHOTERICIN B
     Indication: SYSTEMIC MYCOSIS
     Dosage: 200 MILLIGRAM
     Route: 041
     Dates: start: 20190825, end: 20190830
  19. ACCUPAQUE [Suspect]
     Active Substance: IOHEXOL
     Indication: PRODUCT USED FOR UNKNOWN INDICATION
     Dosage: UNK
     Route: 065
  20. VITAMIN D3 [Suspect]
     Active Substance: CHOLECALCIFEROL
     Indication: PRODUCT USED FOR UNKNOWN INDICATION
     Dosage: 40000 INTERNATIONAL UNIT, QD
     Route: 065
  21. ALLOPURINOL. [Suspect]
     Active Substance: ALLOPURINOL
     Indication: PRODUCT USED FOR UNKNOWN INDICATION
     Route: 065
  22. PHOSPHATE [PHOSPHORIC ACID SODIUM;SODIUM PHOSPHATE DIBASIC] [Suspect]
     Active Substance: SODIUM PHOSPHATE, DIBASIC, ANHYDROUS
     Indication: PRODUCT USED FOR UNKNOWN INDICATION
     Dosage: 500 MILLIGRAM, QD
     Route: 065
  23. CANDESARTAN. [Suspect]
     Active Substance: CANDESARTAN
     Indication: PRODUCT USED FOR UNKNOWN INDICATION
     Dosage: 4 MILLIGRAM, QD
     Route: 065

REACTIONS (9)
  - Large intestine infection [Unknown]
  - Pleural effusion [Recovering/Resolving]
  - Cardiac failure acute [Recovering/Resolving]
  - Disseminated intravascular coagulation [Unknown]
  - Bacteraemia [Unknown]
  - Tumour lysis syndrome [Unknown]
  - Toxic skin eruption [Unknown]
  - Fungal infection [Unknown]
  - Agranulocytosis [Unknown]

NARRATIVE: CASE EVENT DATE: 20190815
